FAERS Safety Report 25899485 (Version 1)
Quarter: 2025Q4

REPORT INFORMATION
  Report Type: Spontaneous
  Country: US (occurrence: US)
  Receive Date: 20251009
  Receipt Date: 20251009
  Transmission Date: 20260117
  Serious: No
  Sender: ROCHE
  Company Number: US-ROCHE-10000400021

PATIENT
  Age: 17 Year
  Sex: Male
  Weight: 68.04 kg

DRUGS (2)
  1. XOLAIR [Suspect]
     Active Substance: OMALIZUMAB
     Indication: Food allergy
     Dosage: 450 MG DOSE EVERY MONTH 1 150 MG INJECTION AND 1 300 MG INJECTION
     Route: 058
     Dates: start: 202406
  2. XOLAIR [Suspect]
     Active Substance: OMALIZUMAB
     Dosage: 450 MG DOSE EVERY MONTH 1 150 MG INJECTION AND 1 300 MG INJECTION
     Route: 058
     Dates: start: 202406

REACTIONS (5)
  - Product dose omission issue [Unknown]
  - Product complaint [Unknown]
  - Product container issue [Unknown]
  - No adverse event [Unknown]
  - Product outer packaging issue [Unknown]

NARRATIVE: CASE EVENT DATE: 20250928
